FAERS Safety Report 4930618-9 (Version None)
Quarter: 2006Q1

REPORT INFORMATION
  Report Type: 
  Country: None (occurrence: None)
  Receive Date: 20060302
  Receipt Date: 20050324
  Transmission Date: 20060701
  Serious: Yes (Hospitalization)
  Sender: FDA-Public Use
  Company Number: US-MERCK-0503USA04811

PATIENT
  Age: 69 Year
  Sex: Male
  Weight: 84 kg

DRUGS (13)
  1. VIOXX [Suspect]
     Indication: OSTEOARTHRITIS
     Route: 048
     Dates: start: 20011108, end: 20011127
  2. VIOXX [Suspect]
     Route: 048
     Dates: start: 20011108, end: 20011127
  3. VIOXX [Suspect]
     Route: 048
     Dates: start: 20011128, end: 20031104
  4. VIOXX [Suspect]
     Indication: PAIN
     Route: 048
     Dates: start: 20011108, end: 20011127
  5. VIOXX [Suspect]
     Route: 048
     Dates: start: 20011108, end: 20011127
  6. VIOXX [Suspect]
     Route: 048
     Dates: start: 20011128, end: 20031104
  7. ASPIRIN [Concomitant]
     Route: 048
  8. DIOVAN [Concomitant]
     Route: 048
  9. SYNTHROID [Concomitant]
     Route: 048
  10. METOPROLOL [Concomitant]
     Route: 048
  11. CARDURA [Concomitant]
     Route: 048
  12. PRILOSEC [Concomitant]
     Route: 048
  13. HYDROCHLOROTHIAZIDE AND TRIAMTERENE [Concomitant]
     Route: 048

REACTIONS (39)
  - ACUTE MYOCARDIAL INFARCTION [None]
  - ARRHYTHMIA SUPRAVENTRICULAR [None]
  - ASTHENIA [None]
  - ATRIAL FIBRILLATION [None]
  - BACK PAIN [None]
  - BLOOD CREATININE INCREASED [None]
  - CONJUNCTIVITIS ALLERGIC [None]
  - CONTUSION [None]
  - COUGH [None]
  - DIPLOPIA [None]
  - DIZZINESS [None]
  - DRUG INEFFECTIVE [None]
  - DYSPNOEA EXERTIONAL [None]
  - FATIGUE [None]
  - GAIT DISTURBANCE [None]
  - GOUT [None]
  - HAEMORRHAGE INTRACRANIAL [None]
  - HYPERCALCAEMIA [None]
  - HYPOKALAEMIA [None]
  - HYPOPHOSPHATAEMIA [None]
  - HYPOTENSION [None]
  - INFLUENZA [None]
  - INSOMNIA [None]
  - NEPHROLITHIASIS [None]
  - OEDEMA PERIPHERAL [None]
  - PAIN IN EXTREMITY [None]
  - PHARYNGOLARYNGEAL PAIN [None]
  - PROSTATE CANCER [None]
  - RHABDOMYOLYSIS [None]
  - RIB FRACTURE [None]
  - ROAD TRAFFIC ACCIDENT [None]
  - SHOULDER PAIN [None]
  - SPINAL COLUMN STENOSIS [None]
  - SUBARACHNOID HAEMORRHAGE [None]
  - SUBDURAL HAEMATOMA [None]
  - TEMPERATURE INTOLERANCE [None]
  - VENTRICULAR ARRHYTHMIA [None]
  - VENTRICULAR FIBRILLATION [None]
  - WHEEZING [None]
